FAERS Safety Report 8335165-2 (Version None)
Quarter: 2012Q2

REPORT INFORMATION
  Report Type: 
  Country: None (occurrence: None)
  Receive Date: 20120503
  Receipt Date: 20120426
  Transmission Date: 20120825
  Serious: Yes (Hospitalization)
  Sender: FDA-Public Use
  Company Number: US-US-EMD SERONO, INC.-7128983

PATIENT
  Age: 42 Year
  Sex: Male

DRUGS (1)
  1. REBIF [Suspect]
     Indication: MULTIPLE SCLEROSIS

REACTIONS (4)
  - DYSARTHRIA [None]
  - MULTIPLE SCLEROSIS RELAPSE [None]
  - ABASIA [None]
  - CENTRAL NERVOUS SYSTEM LESION [None]
